FAERS Safety Report 10224875 (Version 1)
Quarter: 2014Q2

REPORT INFORMATION
  Report Type: Report from Study
  Country: DK (occurrence: DK)
  Receive Date: 20140609
  Receipt Date: 20140609
  Transmission Date: 20141212
  Serious: Yes (Other)
  Sender: FDA-Public Use
  Company Number: DK-GLAXOSMITHKLINE-B1000768A

PATIENT
  Age: 53 Year
  Sex: Female

DRUGS (3)
  1. AFINITOR [Suspect]
     Route: 048
     Dates: start: 20130316, end: 20130722
  2. CEFUROXIME [Suspect]
     Indication: PRODUCT USED FOR UNKNOWN INDICATION
     Route: 065
  3. EXEMESTAN [Concomitant]

REACTIONS (4)
  - Rash [Not Recovered/Not Resolved]
  - Stomatitis [Not Recovered/Not Resolved]
  - Type I hypersensitivity [Unknown]
  - Urticaria [Unknown]
